FAERS Safety Report 12976904 (Version 1)
Quarter: 2016Q4

REPORT INFORMATION
  Report Type: Spontaneous
  Country: NL (occurrence: NL)
  Receive Date: 20161128
  Receipt Date: 20161128
  Transmission Date: 20170207
  Serious: Yes (Hospitalization)
  Sender: FDA-Public Use
  Company Number: PHHY2016NL161330

PATIENT
  Age: 55 Year
  Sex: Male
  Weight: 112 kg

DRUGS (1)
  1. CARBAMAZEPINE. [Suspect]
     Active Substance: CARBAMAZEPINE
     Indication: POLYNEUROPATHY
     Dosage: 200 MG QD ONCE DAILY 200 MG, ADDITIONAL INFORMATION: 2ND WEEK 2 DF DAILY, SINCE 3RD WEEK 3 DF DAILY
     Route: 065
     Dates: start: 20160730, end: 20160920

REACTIONS (2)
  - Confusional state [Recovering/Resolving]
  - Amnesia [Recovering/Resolving]

NARRATIVE: CASE EVENT DATE: 20160731
